FAERS Safety Report 23756583 (Version 2)
Quarter: 2024Q2

REPORT INFORMATION
  Report Type: Spontaneous
  Country: US (occurrence: US)
  Receive Date: 20240418
  Receipt Date: 20240507
  Transmission Date: 20240716
  Serious: Yes (Hospitalization, Other)
  Sender: FDA-Public Use
  Company Number: HIKM2402276

PATIENT
  Sex: Male

DRUGS (1)
  1. TESTOSTERONE CYPIONATE [Suspect]
     Active Substance: TESTOSTERONE CYPIONATE
     Indication: Product used for unknown indication
     Dosage: 1 MILLILITER, SINGLE
     Route: 065

REACTIONS (7)
  - Pain in jaw [Unknown]
  - Hyperhidrosis [Unknown]
  - Pain in extremity [Unknown]
  - Pharyngeal swelling [Unknown]
  - Blood pressure decreased [Unknown]
  - Dyspnoea [Unknown]
  - Product formulation issue [Unknown]
